FAERS Safety Report 24140792 (Version 2)
Quarter: 2024Q3

REPORT INFORMATION
  Report Type: Spontaneous
  Country: BR (occurrence: BR)
  Receive Date: 20240726
  Receipt Date: 20240731
  Transmission Date: 20241016
  Serious: Yes (Other)
  Sender: CHEPLAPHARM
  Company Number: BR-CHEPLA-2024009361

PATIENT
  Sex: Female

DRUGS (23)
  1. CLONAZEPAM [Suspect]
     Active Substance: CLONAZEPAM
     Indication: Insomnia
     Dosage: RIVOTRIL 2 MG 8 YEARS AGO (2016). 1 TABLET A DAY?DAILY DOSE: 1 DOSAGE FORM
     Route: 048
     Dates: start: 2016
  2. CLONAZEPAM [Suspect]
     Active Substance: CLONAZEPAM
     Indication: Panic disorder
     Dosage: RIVOTRIL 2 MG 8 YEARS AGO (2016). 1 TABLET A DAY?DAILY DOSE: 1 DOSAGE FORM
     Route: 048
     Dates: start: 2016
  3. CLONAZEPAM [Suspect]
     Active Substance: CLONAZEPAM
     Indication: Insomnia
     Dosage: SINCE 2021, 1 TABLET EVERY 12 HOURS?DAILY DOSE: 2 DOSAGE FORM
     Route: 048
     Dates: start: 2021, end: 2022
  4. CLONAZEPAM [Suspect]
     Active Substance: CLONAZEPAM
     Indication: Panic disorder
     Dosage: SINCE 2021, 1 TABLET EVERY 12 HOURS?DAILY DOSE: 2 DOSAGE FORM
     Route: 048
     Dates: start: 2021, end: 2022
  5. CLONAZEPAM [Suspect]
     Active Substance: CLONAZEPAM
     Indication: Insomnia
     Dosage: 1 MG X 1 PER 24 HOURS. MAH REF 115240011?DAILY DOSE: 1 MILLIGRAM
     Route: 048
     Dates: start: 2022, end: 2022
  6. CLONAZEPAM [Suspect]
     Active Substance: CLONAZEPAM
     Indication: Panic disorder
     Dosage: 1 MG X 1 PER 24 HOURS. MAH REF 115240011?DAILY DOSE: 1 MILLIGRAM
     Route: 048
     Dates: start: 2022, end: 2022
  7. CLONAZEPAM [Suspect]
     Active Substance: CLONAZEPAM
     Indication: Insomnia
     Dosage: SUBLINGUAL RIVOTRIL 0.25 MG
     Route: 060
     Dates: start: 2022, end: 2022
  8. CLONAZEPAM [Suspect]
     Active Substance: CLONAZEPAM
     Indication: Panic disorder
     Dosage: SUBLINGUAL RIVOTRIL 0.25 MG
     Route: 060
     Dates: start: 2022, end: 2022
  9. CLONAZEPAM [Suspect]
     Active Substance: CLONAZEPAM
     Indication: Insomnia
     Dosage: 2 MG X 1 PER 12 HOURS. MAH REF 115240011?DAILY DOSE: 4 MILLIGRAM
     Route: 048
     Dates: start: 2022
  10. CLONAZEPAM [Suspect]
     Active Substance: CLONAZEPAM
     Indication: Panic disorder
     Dosage: 2 MG X 1 PER 12 HOURS. MAH REF 115240011?DAILY DOSE: 4 MILLIGRAM
     Route: 048
     Dates: start: 2022
  11. CLONAZEPAM [Suspect]
     Active Substance: CLONAZEPAM
     Indication: Insomnia
     Dosage: 1/2 TABLET A DAY IN A WEANING ATTEMPT APPROXIMATELY 2 YEARS AGO?DAILY DOSE: 0.5 DOSAGE FORM
     Route: 048
     Dates: start: 2022
  12. CLONAZEPAM [Suspect]
     Active Substance: CLONAZEPAM
     Indication: Panic disorder
     Dosage: 1/2 TABLET A DAY IN A WEANING ATTEMPT APPROXIMATELY 2 YEARS AGO?DAILY DOSE: 0.5 DOSAGE FORM
     Route: 048
     Dates: start: 2022
  13. CLONAZEPAM [Suspect]
     Active Substance: CLONAZEPAM
     Indication: Insomnia
     Dosage: 1 TABLET EVERY 12 HOURS AT THE SAME TIME?DAILY DOSE: 2 DOSAGE FORM
     Route: 048
     Dates: start: 2022
  14. CLONAZEPAM [Suspect]
     Active Substance: CLONAZEPAM
     Indication: Panic disorder
     Dosage: 1 TABLET EVERY 12 HOURS AT THE SAME TIME?DAILY DOSE: 2 DOSAGE FORM
     Route: 048
     Dates: start: 2022
  15. CLONAZEPAM [Suspect]
     Active Substance: CLONAZEPAM
     Indication: Insomnia
     Dosage: RIVOTRIL 0.25 MG IN 2022 WITH AN UNKNOWN DOSAGE
     Route: 048
     Dates: start: 2022
  16. CLONAZEPAM [Suspect]
     Active Substance: CLONAZEPAM
     Indication: Panic disorder
     Dosage: RIVOTRIL 0.25 MG IN 2022 WITH AN UNKNOWN DOSAGE
     Route: 048
     Dates: start: 2022
  17. CLONAZEPAM [Suspect]
     Active Substance: CLONAZEPAM
     Indication: Insomnia
     Dosage: MAH REF 115240011
     Route: 048
  18. CLONAZEPAM [Suspect]
     Active Substance: CLONAZEPAM
     Indication: Panic disorder
     Dosage: MAH REF 115240011
     Route: 048
  19. SERTRALINE [Concomitant]
     Active Substance: SERTRALINE HYDROCHLORIDE
     Indication: Anxiety
     Dosage: SERTRALINE 50 MG TWICE A DAY?DAILY DOSE: 100 MILLIGRAM
     Route: 048
     Dates: start: 2016
  20. SERTRALINE [Concomitant]
     Active Substance: SERTRALINE HYDROCHLORIDE
     Indication: Depression
     Dosage: SERTRALINE 50 MG TWICE A DAY?DAILY DOSE: 100 MILLIGRAM
     Route: 048
     Dates: start: 2016
  21. DIENOGEST [Concomitant]
     Active Substance: DIENOGEST
     Indication: Oral contraception
     Dosage: ALLURENE (DIENOGEST) 2 MG
     Route: 048
     Dates: start: 2020
  22. DIENOGEST [Concomitant]
     Active Substance: DIENOGEST
     Indication: Endometriosis
     Dosage: ALLURENE (DIENOGEST) 2 MG
     Route: 048
     Dates: start: 2020
  23. ZOLPIDEM TARTRATE [Concomitant]
     Active Substance: ZOLPIDEM TARTRATE
     Indication: Insomnia
     Dosage: 3 TABLETS. APPROXIMATELY 2 YEARS AGO (2022)
     Route: 048
     Dates: start: 2022, end: 2022

REACTIONS (8)
  - Hallucination [Not Recovered/Not Resolved]
  - Drug dependence [Not Recovered/Not Resolved]
  - Endometriosis [Not Recovered/Not Resolved]
  - Malaise [Not Recovered/Not Resolved]
  - Withdrawal syndrome [Not Recovered/Not Resolved]
  - Amnesia [Recovered/Resolved]
  - Suicide attempt [Recovered/Resolved]
  - Somnolence [Not Recovered/Not Resolved]

NARRATIVE: CASE EVENT DATE: 20160101
